FAERS Safety Report 7138066-0 (Version None)
Quarter: 2010Q4

REPORT INFORMATION
  Report Type: 
  Country: None (occurrence: None)
  Receive Date: 20101206
  Receipt Date: 20101202
  Transmission Date: 20110411
  Serious: Yes (Death, Hospitalization, Other)
  Sender: FDA-Public Use
  Company Number: GR-SANOFI-AVENTIS-2010SA070281

PATIENT
  Age: 55 Year
  Sex: Male

DRUGS (4)
  1. TAXOTERE [Suspect]
     Route: 041
     Dates: start: 20101112, end: 20101112
  2. GEMZAR [Concomitant]
     Dates: start: 20100601, end: 20101101
  3. GEMZAR [Concomitant]
     Dates: start: 20101112, end: 20101112
  4. VINORELBINE [Concomitant]
     Dates: start: 20100601, end: 20101101

REACTIONS (6)
  - CEREBRAL HAEMORRHAGE [None]
  - CHEST PAIN [None]
  - CONFUSIONAL STATE [None]
  - MYOCARDIAL INFARCTION [None]
  - PERIPHERAL EMBOLISM [None]
  - THROMBOCYTOPENIA [None]
